FAERS Safety Report 6142571-3 (Version None)
Quarter: 2009Q2

REPORT INFORMATION
  Report Type: 
  Country: None (occurrence: None)
  Receive Date: 20090403
  Receipt Date: 20090323
  Transmission Date: 20091009
  Serious: Yes (Death, Hospitalization)
  Sender: FDA-Public Use
  Company Number: DE-PFIZER INC-2009186876

PATIENT

DRUGS (1)
  1. SUTENT [Suspect]
     Indication: OVARIAN CANCER
     Dosage: 50 MG, 1X/DAY ONCE DAILY FOR 4 WKS EVERY 6 WKS
     Route: 048

REACTIONS (2)
  - FATIGUE [None]
  - HEPATIC FAILURE [None]
